FAERS Safety Report 8338608-3 (Version None)
Quarter: 2012Q2

REPORT INFORMATION
  Report Type: 
  Country: None (occurrence: None)
  Receive Date: 20120504
  Receipt Date: 20120328
  Transmission Date: 20120825
  Serious: Yes (Other)
  Sender: FDA-Public Use
  Company Number: IT-BAXTER-2012BAX001317

PATIENT
  Sex: Male

DRUGS (1)
  1. KIOVIG [Suspect]
     Indication: THROMBOCYTOPENIA
     Route: 042
     Dates: start: 20090101, end: 20110718

REACTIONS (3)
  - DRUG INEFFECTIVE [None]
  - THROMBOCYTOPENIA [None]
  - PRURITUS GENERALISED [None]
